FAERS Safety Report 5780179-X (Version None)
Quarter: 2008Q2

REPORT INFORMATION
  Report Type: 
  Country: None (occurrence: None)
  Receive Date: 20080620
  Receipt Date: 20080611
  Transmission Date: 20081010
  Serious: Yes (Death, Life-Threatening, Hospitalization)
  Sender: FDA-Public Use
  Company Number: JP-JNJFOC-20080305566

PATIENT
  Sex: Male
  Weight: 43 kg

DRUGS (27)
  1. FENTANYL-100 [Suspect]
     Route: 062
  2. FENTANYL-100 [Suspect]
     Route: 062
  3. FENTANYL-100 [Suspect]
     Indication: PAIN
     Route: 062
  4. FENTANYL-100 [Suspect]
     Indication: CANCER PAIN
     Route: 062
  5. LOXONIN [Concomitant]
     Indication: CANCER PAIN
     Route: 048
  6. EURODIN [Concomitant]
     Indication: INSOMNIA
     Route: 048
  7. BROCIN [Concomitant]
     Indication: PRODUCTIVE COUGH
     Route: 048
  8. ALLOID G [Concomitant]
     Indication: REFLUX OESOPHAGITIS
     Route: 048
  9. ALLOID G [Concomitant]
     Indication: PRODUCTIVE COUGH
     Route: 048
  10. VOLTAREN [Concomitant]
     Indication: CANCER PAIN
     Route: 054
  11. FENTANYL TRANSDERMAL SYSTEM [Concomitant]
     Indication: CANCER PAIN
     Route: 062
  12. ROPION [Concomitant]
     Route: 042
  13. ROPION [Concomitant]
     Indication: CANCER PAIN
     Dosage: 50MG 5ML
     Route: 042
  14. VEEN-D [Concomitant]
     Indication: NUTRITIONAL SUPPORT
     Route: 042
  15. SULBACILLIN [Concomitant]
     Indication: PNEUMONIA
     Route: 041
  16. ISOTONIC SODIUM CHLORIDE SOLUTION [Concomitant]
     Indication: PNEUMONIA
     Route: 042
  17. FAMOTIDINE [Concomitant]
     Indication: GASTRIC ULCER
     Route: 048
  18. PREDONIN [Concomitant]
     Indication: PNEUMONIA ASPIRATION
     Route: 048
  19. ENSURE LIQUID [Concomitant]
     Indication: NUTRITIONAL SUPPORT
     Route: 048
  20. MEROPEN [Concomitant]
     Indication: PNEUMONIA ASPIRATION
     Route: 042
  21. ALBUMINATE [Concomitant]
     Indication: BLOOD ALBUMIN DECREASED
     Route: 042
  22. INTRAFAT [Concomitant]
     Indication: NUTRITIONAL SUPPORT
     Route: 042
  23. FULCALIQ [Concomitant]
     Route: 042
  24. FULCALIQ [Concomitant]
     Indication: NUTRITIONAL SUPPORT
     Route: 042
  25. MIDAZOLAM HCL [Concomitant]
     Route: 042
  26. MIDAZOLAM HCL [Concomitant]
     Indication: ANALGESIA
     Route: 042
  27. ELASPOL [Concomitant]
     Indication: PNEUMONIA ASPIRATION
     Route: 042

REACTIONS (5)
  - DISSEMINATED INTRAVASCULAR COAGULATION [None]
  - DRUG INEFFECTIVE [None]
  - PNEUMONIA ASPIRATION [None]
  - RESPIRATORY FAILURE [None]
  - SOMNOLENCE [None]
